FAERS Safety Report 4364589-3 (Version None)
Quarter: 2004Q2

REPORT INFORMATION
  Report Type: 
  Country: None (occurrence: None)
  Receive Date: 20040525
  Receipt Date: 20040504
  Transmission Date: 20050107
  Serious: Yes (Death, Hospitalization)
  Sender: FDA-Public Use
  Company Number: REM_00057_2004

PATIENT
  Age: 48 Year
  Sex: Female

DRUGS (3)
  1. REMODULIN [Suspect]
     Indication: PULMONARY HYPERTENSION
  2. TRACLEER [Suspect]
     Indication: PULMONARY HYPERTENSION
     Dosage: 62.5 MG BID PO
     Route: 048
     Dates: start: 20021218, end: 20030117
  3. TRACLEER [Suspect]
     Indication: PULMONARY HYPERTENSION
     Dosage: 125 MG BID PO
     Route: 048
     Dates: start: 20030118

REACTIONS (3)
  - COR PULMONALE [None]
  - HYPOTENSION [None]
  - RESPIRATORY FAILURE [None]
